FAERS Safety Report 13094004 (Version 2)
Quarter: 2017Q1

REPORT INFORMATION
  Report Type: Spontaneous
  Country: US (occurrence: US)
  Receive Date: 20170106
  Receipt Date: 20170223
  Transmission Date: 20170428
  Serious: No
  Sender: FDA-Public Use
  Company Number: US-LUNDBECK-DKLU2020345

PATIENT
  Age: 49 Year
  Sex: Male

DRUGS (2)
  1. NORTHERA [Suspect]
     Active Substance: DROXIDOPA
     Indication: PRODUCT USED FOR UNKNOWN INDICATION
     Dosage: TITRATION SCHEDULE B (TITRATION COMPLETE)
     Route: 065
     Dates: start: 20160817
  2. NORTHERA [Suspect]
     Active Substance: DROXIDOPA
     Dosage: 500 MG OR 600 MG TID
     Route: 065

REACTIONS (3)
  - Hypertension [Unknown]
  - Visual impairment [Unknown]
  - Dizziness [Not Recovered/Not Resolved]

NARRATIVE: CASE EVENT DATE: 20160817
